FAERS Safety Report 4528320-0 (Version None)
Quarter: 2004Q4

REPORT INFORMATION
  Report Type: 
  Country: None (occurrence: None)
  Receive Date: 20041130
  Receipt Date: 20040804
  Transmission Date: 20050328
  Serious: Yes (Hospitalization)
  Sender: FDA-Public Use
  Company Number: WAES 0408USA00448

PATIENT
  Age: 55 Year
  Sex: Male

DRUGS (3)
  1. ZETIA [Suspect]
     Indication: BLOOD CHOLESTEROL
     Dosage: 10 MG/DAILY, PO
     Route: 048
  2. NIASPAN [Concomitant]
  3. TRICOR [Concomitant]

REACTIONS (1)
  - PANCREATITIS [None]
